FAERS Safety Report 6253799-6 (Version None)
Quarter: 2009Q3

REPORT INFORMATION
  Report Type: 
  Country: None (occurrence: None)
  Receive Date: 20090702
  Receipt Date: 20070516
  Transmission Date: 20100115
  Serious: Yes (Other)
  Sender: FDA-Public Use
  Company Number: US-ASTRAZENECA-2006UW26120

PATIENT
  Age: 16311 Day
  Sex: Female
  Weight: 58.1 kg

DRUGS (31)
  1. SEROQUEL [Suspect]
     Dosage: 25-100 MG
     Route: 048
     Dates: start: 19990715
  2. SEROQUEL [Suspect]
     Route: 048
     Dates: start: 19991101
  3. SEROQUEL [Suspect]
     Route: 048
     Dates: end: 20050101
  4. HALDOL [Concomitant]
     Dates: start: 20010101
  5. PROZAC [Concomitant]
     Dates: start: 19980928
  6. COGENTIN [Concomitant]
     Dates: start: 19990409
  7. MECLIZINE [Concomitant]
     Indication: VERTIGO
     Route: 048
     Dates: start: 20020626
  8. ALLEGRA [Concomitant]
     Route: 048
     Dates: start: 20020130
  9. LORAZEPAM [Concomitant]
     Dates: start: 20020130
  10. AMBIEN [Concomitant]
     Route: 048
     Dates: start: 20030113
  11. LIPITOR [Concomitant]
     Dates: start: 19991103
  12. SYNTHROID [Concomitant]
     Dates: start: 20020130
  13. REGLAN [Concomitant]
     Route: 048
     Dates: start: 20020130
  14. PRILOSEC [Concomitant]
     Dates: start: 20020130
  15. RENAGEL [Concomitant]
     Dates: start: 20020130
  16. VICODIN [Concomitant]
     Dosage: 10/325 MG THREE TIMES A DAY
     Dates: start: 20030728
  17. PREVACID [Concomitant]
     Route: 048
     Dates: start: 20020131
  18. LEVOXYL [Concomitant]
     Dates: start: 20041129
  19. REMERON [Concomitant]
     Route: 048
     Dates: start: 20041129
  20. COMPAZINE [Concomitant]
     Dates: start: 20020625
  21. GLUCOPHAGE [Concomitant]
     Dates: start: 20050620, end: 20051004
  22. GLIPIZIDE [Concomitant]
     Dates: start: 20051004
  23. CYCLOSPORINE [Concomitant]
     Dates: start: 20051004
  24. TOPROL-XL [Concomitant]
     Indication: BLOOD PRESSURE
     Dates: start: 20051004
  25. ABILIFY [Concomitant]
     Dosage: 15 MG IN MORNING
     Dates: start: 20070815
  26. FLORINEF [Concomitant]
     Dates: start: 20050620
  27. BYETTA [Concomitant]
     Route: 058
     Dates: start: 20070818
  28. ACTOS [Concomitant]
     Dates: start: 20070818
  29. NORVASC [Concomitant]
     Dates: start: 20070818
  30. HYDROCHLOROTHIAZIDE [Concomitant]
     Dates: start: 20070818
  31. ENTEX SOLUTION [Concomitant]
     Indication: SINUS CONGESTION
     Dates: start: 20060303

REACTIONS (7)
  - DIABETES MELLITUS [None]
  - DIABETIC FOOT [None]
  - GLUCOSE TOLERANCE IMPAIRED [None]
  - HYPOGLYCAEMIA [None]
  - NEUROPATHY PERIPHERAL [None]
  - TYPE 1 DIABETES MELLITUS [None]
  - TYPE 2 DIABETES MELLITUS [None]
